FAERS Safety Report 4503480-6 (Version None)
Quarter: 2004Q4

REPORT INFORMATION
  Report Type: 
  Country: None (occurrence: None)
  Receive Date: 20041112
  Receipt Date: 20041109
  Transmission Date: 20050328
  Serious: Yes (Hospitalization)
  Sender: FDA-Public Use
  Company Number: MK200410-0079-2

PATIENT
  Age: 4 Year
  Sex: Female

DRUGS (3)
  1. FLUOXETINE [Suspect]
     Indication: ANXIETY
     Dosage: 5MG, DAILY
  2. LINEZOLID 140MG [Suspect]
     Dosage: Q12H
  3. FENTANYL 200UG [Suspect]
     Dosage: ONE TIME DOSE

REACTIONS (9)
  - AGITATION [None]
  - DRUG INTERACTION [None]
  - DYSKINESIA [None]
  - GAZE PALSY [None]
  - MYDRIASIS [None]
  - MYOCLONUS [None]
  - NYSTAGMUS [None]
  - RESTLESSNESS [None]
  - SEROTONIN SYNDROME [None]
